FAERS Safety Report 6687061-4 (Version None)
Quarter: 2010Q2

REPORT INFORMATION
  Report Type: 
  Country: None (occurrence: None)
  Receive Date: 20100419
  Receipt Date: 20100409
  Transmission Date: 20101027
  Serious: Yes (Other)
  Sender: FDA-Public Use
  Company Number: US-PFIZER INC-2010046031

PATIENT
  Sex: Female
  Weight: 70 kg

DRUGS (1)
  1. LIPITOR [Suspect]
     Indication: BLOOD CHOLESTEROL INCREASED
     Dosage: 10 MG, DAILY
     Route: 048
     Dates: start: 19950101

REACTIONS (3)
  - HYPERTONIA [None]
  - MOVEMENT DISORDER [None]
  - MUSCLE SPASMS [None]
